FAERS Safety Report 9990051 (Version 1)
Quarter: 2014Q1

REPORT INFORMATION
  Report Type: Spontaneous
  Country: US (occurrence: None)
  Receive Date: 20140123
  Receipt Date: 20140123
  Transmission Date: 20141002
  Serious: Yes (Hospitalization)
  Sender: FDA-Public Use
  Company Number: UTC-036405

PATIENT
  Age: 74 Year
  Sex: Female
  Weight: 40.9 kg

DRUGS (2)
  1. REMODULIN (1 MILLIGRAM/MILLILITERS, INJECTION FOR INFUSION)(TREPROSTINIL SODIUM) [Suspect]
     Indication: COR PULMONALE CHRONIC
     Dosage: 50.4 UG/KG (0.035 UG/KG, 1 IN 1 MIN)
     Route: 041
     Dates: start: 20111119
  2. TRACLEER (BOSENTAN)(UNKNOWN) [Concomitant]

REACTIONS (1)
  - Device related infection [None]
